FAERS Safety Report 18628004 (Version 1)
Quarter: 2020Q4

REPORT INFORMATION
  Report Type: Spontaneous
  Country: US (occurrence: US)
  Receive Date: 20201216
  Receipt Date: 20201216
  Transmission Date: 20210114
  Serious: No
  Sender: FDA-Public Use
  Company Number: None

PATIENT
  Sex: Male

DRUGS (7)
  1. AMLODIPINE [Concomitant]
     Active Substance: AMLODIPINE BESYLATE
  2. ATORVASTATIN [Concomitant]
     Active Substance: ATORVASTATIN
  3. LOSARTAN/POT MONTELUKAST [Concomitant]
  4. SPIRONOLACT [Concomitant]
     Active Substance: SPIRONOLACTONE
  5. ESBRIET [Suspect]
     Active Substance: PIRFENIDONE
     Indication: IDIOPATHIC PULMONARY FIBROSIS
     Route: 048
     Dates: start: 20151212
  6. BRILINTA [Concomitant]
     Active Substance: TICAGRELOR
  7. ADVAIR DISKU [Concomitant]

REACTIONS (1)
  - Coronary artery disease [None]
